FAERS Safety Report 7851199-6 (Version None)
Quarter: 2011Q3

REPORT INFORMATION
  Report Type: 
  Country: None (occurrence: None)
  Receive Date: 20110902
  Receipt Date: 20110518
  Transmission Date: 20111222
  Serious: No
  Sender: FDA-Public Use
  Company Number: 163-22393-11022903

PATIENT
  Sex: Male

DRUGS (1)
  1. ISTODAX [Suspect]
     Indication: MYCOSIS FUNGOIDES
     Dosage: 3 WEEK ON 1 WEEK OFF

REACTIONS (2)
  - DISEASE PROGRESSION [None]
  - NODULE [None]
